FAERS Safety Report 10269692 (Version 2)
Quarter: 2014Q3

REPORT INFORMATION
  Report Type: Spontaneous
  Country: GB (occurrence: None)
  Receive Date: 20140625
  Receipt Date: 20140825
  Transmission Date: 20150326
  Serious: Yes (Other)
  Sender: FDA-Public Use
  Company Number: 2014-19799

PATIENT
  Age: 69 Year

DRUGS (1)
  1. EYLEA [Suspect]
     Active Substance: AFLIBERCEPT
     Indication: MACULAR DEGENERATION
     Dosage: RIGHT EYE EYLEA NO. 1
     Route: 031
     Dates: start: 20140605

REACTIONS (2)
  - Endophthalmitis [None]
  - Blindness [None]

NARRATIVE: CASE EVENT DATE: 20140608
